FAERS Safety Report 6612067-0 (Version None)
Quarter: 2010Q1

REPORT INFORMATION
  Report Type: 
  Country: None (occurrence: None)
  Receive Date: 20100303
  Receipt Date: 20100221
  Transmission Date: 20100710
  Serious: Yes (Other)
  Sender: FDA-Public Use
  Company Number: B0633804A

PATIENT
  Age: 40 Year
  Sex: Male

DRUGS (3)
  1. LAMIVUDINE [Suspect]
     Indication: HIV INFECTION
     Route: 065
  2. ZIDOVUDINE [Suspect]
     Indication: HIV INFECTION
     Route: 065
  3. INDINAVIR [Suspect]
     Indication: HIV INFECTION
     Route: 065

REACTIONS (5)
  - ASTHENIA [None]
  - MOVEMENT DISORDER [None]
  - MUTISM [None]
  - NERVOUS SYSTEM DISORDER [None]
  - PROGRESSIVE MULTIFOCAL LEUKOENCEPHALOPATHY [None]
